FAERS Safety Report 6146407-6 (Version None)
Quarter: 2009Q2

REPORT INFORMATION
  Report Type: 
  Country: None (occurrence: None)
  Receive Date: 20090403
  Receipt Date: 20090403
  Transmission Date: 20091009
  Serious: No
  Sender: FDA-Public Use
  Company Number: None

PATIENT
  Age: 32 Year
  Sex: Female
  Weight: 83.9154 kg

DRUGS (2)
  1. AVELOX [Suspect]
     Indication: SINUSITIS
  2. AUGMENTIN '125' [Suspect]
     Indication: SINUSITIS

REACTIONS (15)
  - ABDOMINAL PAIN [None]
  - ABDOMINAL PAIN UPPER [None]
  - ARTHRALGIA [None]
  - COLITIS [None]
  - DISTURBANCE IN ATTENTION [None]
  - DRY EYE [None]
  - DYSSTASIA [None]
  - NERVOUSNESS [None]
  - NIGHTMARE [None]
  - PAIN [None]
  - PALPITATIONS [None]
  - PERIPHERAL COLDNESS [None]
  - PYREXIA [None]
  - TENDON PAIN [None]
  - VULVOVAGINAL MYCOTIC INFECTION [None]
